FAERS Safety Report 14614082 (Version 1)
Quarter: 2018Q1

REPORT INFORMATION
  Report Type: Spontaneous
  Country: ZA (occurrence: ZA)
  Receive Date: 20180308
  Receipt Date: 20180308
  Transmission Date: 20180509
  Serious: Yes (Hospitalization)
  Sender: FDA-Public Use
  Company Number: ZA-PFIZER INC-2018096508

PATIENT
  Age: 29 Year
  Sex: Female

DRUGS (3)
  1. PREMARIN [Suspect]
     Active Substance: ESTROGENS, CONJUGATED
     Dosage: 0.625 MG, UNK
  2. ESPIRIDE [Concomitant]
     Active Substance: SULPIRIDE
     Dosage: 50 MG, UNK
  3. ADCO-ZOLPIDEM [Concomitant]
     Active Substance: ZOLPIDEM TARTRATE
     Dosage: 10 MG, UNK

REACTIONS (1)
  - Gastroenteritis [Unknown]
